FAERS Safety Report 7012574-5 (Version None)
Quarter: 2010Q3

REPORT INFORMATION
  Report Type: 
  Country: None (occurrence: None)
  Receive Date: 20100924
  Receipt Date: 20100920
  Transmission Date: 20110219
  Serious: Yes (Death, Hospitalization, Other)
  Sender: FDA-Public Use
  Company Number: PHHY2010NL40750

PATIENT
  Sex: Female
  Weight: 11 kg

DRUGS (5)
  1. GLEEVEC [Suspect]
     Indication: NEUROFIBROMATOSIS
     Dosage: 150 MG
     Dates: start: 20091006
  2. GLEEVEC [Suspect]
     Indication: NEUROFIBROMA
  3. ZANTAC [Concomitant]
  4. GAVISCON [Concomitant]
  5. MACROGOL [Concomitant]

REACTIONS (9)
  - DEVICE OCCLUSION [None]
  - HYPOXIA [None]
  - IMPAIRED GASTRIC EMPTYING [None]
  - INFECTION [None]
  - NAUSEA [None]
  - NEOPLASM [None]
  - NEUTROPENIA [None]
  - PYREXIA [None]
  - VOMITING [None]
